FAERS Safety Report 5151640-6 (Version None)
Quarter: 2006Q4

REPORT INFORMATION
  Report Type: 
  Country: None (occurrence: None)
  Receive Date: 20061109
  Receipt Date: 20061024
  Transmission Date: 20070319
  Serious: Yes (Death)
  Sender: FDA-Public Use
  Company Number: DSA_61252_2006

PATIENT
  Age: 53 Year

DRUGS (3)
  1. DIAZEPAM [Suspect]
     Dosage: PO
     Route: 048
  2. ACETAMINOPHEN AND HYDROCODONE BITARTRATE [Suspect]
     Dosage: PO
     Route: 048
  3. MORPHINE [Suspect]
     Dosage: PO
     Route: 048

REACTIONS (1)
  - DEATH [None]
